FAERS Safety Report 6746307-4 (Version None)
Quarter: 2010Q2

REPORT INFORMATION
  Report Type: 
  Country: None (occurrence: None)
  Receive Date: 20100528
  Receipt Date: 20100521
  Transmission Date: 20101027
  Serious: Yes (Other)
  Sender: FDA-Public Use
  Company Number: US-SANOFI-AVENTIS-2010SA029585

PATIENT
  Sex: Male

DRUGS (6)
  1. MULTAQ [Suspect]
     Route: 048
  2. MULTAQ [Suspect]
     Route: 048
  3. DIGOXIN [Concomitant]
  4. AMIODARONE [Concomitant]
  5. AMIODARONE [Concomitant]
  6. WARFARIN SODIUM [Concomitant]

REACTIONS (2)
  - ATRIOVENTRICULAR BLOCK [None]
  - SUPRAVENTRICULAR EXTRASYSTOLES [None]
